FAERS Safety Report 11707883 (Version 1)
Quarter: 2015Q4

REPORT INFORMATION
  Report Type: Spontaneous
  Country: US (occurrence: US)
  Receive Date: 20151104
  Receipt Date: 20151104
  Transmission Date: 20160304
  Serious: No
  Sender: FDA-Public Use
  Company Number: US-ELI_LILLY_AND_COMPANY-US201108001845

PATIENT
  Sex: Female

DRUGS (2)
  1. FORTEO [Suspect]
     Active Substance: TERIPARATIDE
     Indication: OSTEOPOROSIS
     Dosage: 20 UG, QD
     Dates: start: 20110721
  2. CALCIUM [Concomitant]
     Active Substance: CALCIUM

REACTIONS (8)
  - Malaise [Unknown]
  - Vomiting [Unknown]
  - Dizziness [Unknown]
  - Insomnia [Unknown]
  - Hyperhidrosis [Unknown]
  - Feeling hot [Unknown]
  - Nausea [Unknown]
  - Middle insomnia [Unknown]
